FAERS Safety Report 8307618-4 (Version None)
Quarter: 2012Q2

REPORT INFORMATION
  Report Type: 
  Country: None (occurrence: None)
  Receive Date: 20120424
  Receipt Date: 20120418
  Transmission Date: 20120825
  Serious: Yes (Congenital Anomaly, Other)
  Sender: FDA-Public Use
  Company Number: US-PFIZER INC-2012083380

PATIENT
  Sex: Male

DRUGS (1)
  1. ZOLOFT [Suspect]
     Indication: DEPRESSION
     Dosage: UNK
     Route: 064
     Dates: start: 19800101, end: 19841101

REACTIONS (10)
  - MATERNAL EXPOSURE TIMING UNSPECIFIED [None]
  - BRAIN INJURY [None]
  - CLEFT PALATE [None]
  - VISUAL IMPAIRMENT [None]
  - MICROTIA [None]
  - RENAL DISORDER [None]
  - DYSPHAGIA [None]
  - SPEECH DISORDER [None]
  - ANOTIA [None]
  - GAIT DISTURBANCE [None]
